FAERS Safety Report 20645310 (Version 1)
Quarter: 2022Q1

REPORT INFORMATION
  Report Type: Spontaneous
  Country: US (occurrence: None)
  Receive Date: 20220328
  Receipt Date: 20220328
  Transmission Date: 20220423
  Serious: Yes (Hospitalization)
  Sender: FDA-Public Use
  Company Number: None

PATIENT
  Age: 76 Year
  Sex: Female
  Weight: 69.75 kg

DRUGS (1)
  1. LIDOCAINE HYDROCHLORIDE [Suspect]
     Active Substance: LIDOCAINE HYDROCHLORIDE
     Indication: Urinary tract infection
     Dosage: FREQUENCY : DAILY;?
     Route: 030
     Dates: start: 20220311, end: 20220312

REACTIONS (6)
  - Adverse drug reaction [None]
  - Paraesthesia [None]
  - Paraesthesia oral [None]
  - Nausea [None]
  - Dizziness [None]
  - Blood pressure increased [None]

NARRATIVE: CASE EVENT DATE: 20220312
